FAERS Safety Report 7456195-9 (Version None)
Quarter: 2011Q2

REPORT INFORMATION
  Report Type: 
  Country: None (occurrence: None)
  Receive Date: 20110503
  Receipt Date: 20110425
  Transmission Date: 20111010
  Serious: Yes (Other)
  Sender: FDA-Public Use
  Company Number: CZ-GENZYME-THYM-1002435

PATIENT
  Age: 51 Year
  Sex: Male

DRUGS (4)
  1. CORTICOSTEROID NOS [Concomitant]
     Indication: IMMUNOSUPPRESSANT DRUG THERAPY
  2. THYMOGLOBULIN [Suspect]
     Indication: PROPHYLAXIS AGAINST TRANSPLANT REJECTION
     Dosage: UNK
     Dates: start: 20081218, end: 20081218
  3. TACROLIMUS [Concomitant]
     Indication: IMMUNOSUPPRESSANT DRUG THERAPY
  4. MYCOPHENOLATE MOFETIL [Concomitant]
     Indication: IMMUNOSUPPRESSANT DRUG THERAPY

REACTIONS (3)
  - RENAL IMPAIRMENT [None]
  - ATRIOVENTRICULAR BLOCK [None]
  - TRANSPLANT REJECTION [None]
